FAERS Safety Report 8646406 (Version 2)
Quarter: 2012Q4

REPORT INFORMATION
  Report Type: Report from Study
  Country: JP (occurrence: JP)
  Receive Date: 20120702
  Receipt Date: 20121206
  Transmission Date: 20130627
  Serious: Yes (Other)
  Sender: FDA-Public Use
  Company Number: JP-VERTEX PHARMACEUTICALS INC.-AE-2012-009401

PATIENT
  Age: 39 Year
  Sex: Male

DRUGS (12)
  1. VX-950 (TELAPREVIR) [Suspect]
     Indication: CHRONIC HEPATITIS C
     Dosage: 1500 mg, qd
     Route: 048
     Dates: start: 20120305
  2. RIBAVIRIN [Suspect]
     Indication: CHRONIC HEPATITIS C
     Dosage: 800 mg, qd
     Route: 048
     Dates: start: 20120305, end: 20120319
  3. RIBAVIRIN [Suspect]
     Dosage: 600 mg, qd
     Route: 048
     Dates: start: 20120320
  4. PEGINTERFERON ALFA-2B [Suspect]
     Indication: CHRONIC HEPATITIS C
     Dosage: 100 ?g, qw
     Route: 058
     Dates: start: 20120305
  5. PEGINTERFERON ALFA-2B [Suspect]
     Dosage: 1.5 ?g/kg, qw
     Route: 058
     Dates: end: 20120507
  6. PEGINTERFERON ALFA-2B [Suspect]
     Dosage: 1.5 ?g/kg, qw
     Route: 058
     Dates: start: 20120514
  7. ALLELOCK [Concomitant]
     Dosage: 10 mg, qd
     Route: 048
     Dates: start: 20120312
  8. FEBURIC [Concomitant]
     Dosage: 20 mg, qd
     Route: 048
  9. PREDONINE [Concomitant]
     Dosage: 20 mg, qd
     Route: 048
     Dates: start: 20120315, end: 20120319
  10. PREDONINE [Concomitant]
     Dosage: 10 mg, qd
     Route: 048
     Dates: start: 20120320, end: 20120324
  11. PREDONINE [Concomitant]
     Dosage: 5 mg, qd
     Route: 048
     Dates: start: 20120325, end: 20120329
  12. PARIET [Concomitant]
     Dosage: 10 mg, qd
     Route: 048
     Dates: start: 20120416

REACTIONS (1)
  - Neutrophil count decreased [Recovered/Resolved]
